FAERS Safety Report 23325921 (Version 1)
Quarter: 2023Q4

REPORT INFORMATION
  Report Type: Report from Study
  Country: US (occurrence: US)
  Receive Date: 20231221
  Receipt Date: 20231221
  Transmission Date: 20240110
  Serious: No
  Sender: FDA-Public Use
  Company Number: US-002147023-NVSC2021US151744

PATIENT
  Sex: Female
  Weight: 67.12 kg

DRUGS (10)
  1. TREPROSTINIL [Suspect]
     Active Substance: TREPROSTINIL
     Indication: Pulmonary arterial hypertension
     Dosage: 75.3 NANOGRAM PER KILOGRAM, CONT (NG/KG/MIN)
     Route: 058
     Dates: start: 20210618
  2. TREPROSTINIL [Suspect]
     Active Substance: TREPROSTINIL
     Dosage: 75.3 NANOGRAM PER KILOGRAM, CONT (NG/KG/MIN)
     Route: 058
  3. TREPROSTINIL [Suspect]
     Active Substance: TREPROSTINIL
     Dosage: UNK
     Route: 065
  4. TREPROSTINIL [Suspect]
     Active Substance: TREPROSTINIL
     Dosage: 75.3 NANOGRAM PER KILOGRAM, CONT (NG/KG/MIN)
     Route: 058
  5. TREPROSTINIL [Suspect]
     Active Substance: TREPROSTINIL
     Dosage: 91.4 NANOGRAM PER KILOGRAM, CONT  (NG/KG/MIN)
     Route: 058
  6. TREPROSTINIL [Suspect]
     Active Substance: TREPROSTINIL
     Dosage: 91.4 NANOGRAM PER KILOGRAM, CONT  (NG/KG/MIN)
     Route: 058
  7. TREPROSTINIL [Suspect]
     Active Substance: TREPROSTINIL
     Dosage: 9.4 UNK, NG/KG/ MI N
     Route: 058
     Dates: start: 20210618
  8. ADCIRCA [Concomitant]
     Active Substance: TADALAFIL
     Indication: Pulmonary arterial hypertension
     Dosage: UNK
     Route: 065
  9. OPSUMIT [Concomitant]
     Active Substance: MACITENTAN
     Indication: Pulmonary arterial hypertension
     Dosage: UNK
     Route: 065
  10. TADALAFIL [Concomitant]
     Active Substance: TADALAFIL
     Indication: Product used for unknown indication
     Dosage: UNK
     Route: 065

REACTIONS (18)
  - Hypersensitivity [Unknown]
  - Pain [Unknown]
  - Abdominal discomfort [Unknown]
  - Vaginal infection [Unknown]
  - Peripheral swelling [Unknown]
  - Condition aggravated [Unknown]
  - Fungal infection [Unknown]
  - Cough [Unknown]
  - Syringe issue [Unknown]
  - Weight decreased [Unknown]
  - Injection site haemorrhage [Unknown]
  - Infusion related reaction [Unknown]
  - Fatigue [Unknown]
  - Headache [Unknown]
  - Diarrhoea [Unknown]
  - Injection site pain [Unknown]
  - Injection site erythema [Unknown]
  - Injection site bruising [Unknown]
